FAERS Safety Report 18469192 (Version 1)
Quarter: 2020Q4

REPORT INFORMATION
  Report Type: Spontaneous
  Country: GB (occurrence: CO)
  Receive Date: 20201105
  Receipt Date: 20201105
  Transmission Date: 20210114
  Serious: Yes (Death, Life-Threatening, Hospitalization, Other)
  Sender: FDA-Public Use
  Company Number: CO-ELI_LILLY_AND_COMPANY-CO202011000912

PATIENT
  Age: 64 Year
  Sex: Female

DRUGS (6)
  1. CISPLATIN. [Concomitant]
     Active Substance: CISPLATIN
     Indication: HEPATIC CANCER METASTATIC
  2. GEMCITABINE HYDROCHLORIDE. [Suspect]
     Active Substance: GEMCITABINE HYDROCHLORIDE
     Indication: GALLBLADDER CANCER
  3. OXALIPLATIN. [Suspect]
     Active Substance: OXALIPLATIN
     Indication: MALIGNANT NEOPLASM PROGRESSION
     Dosage: UNK UNK, CYCLICAL
     Route: 065
  4. CISPLATIN. [Concomitant]
     Active Substance: CISPLATIN
     Indication: GALLBLADDER CANCER
  5. GEMCITABINE HYDROCHLORIDE. [Suspect]
     Active Substance: GEMCITABINE HYDROCHLORIDE
     Indication: HEPATIC CANCER METASTATIC
  6. CAPECITABINE. [Concomitant]
     Active Substance: CAPECITABINE
     Indication: MALIGNANT NEOPLASM PROGRESSION

REACTIONS (3)
  - Thrombotic microangiopathy [Unknown]
  - Malignant neoplasm progression [Unknown]
  - Death [Fatal]
